FAERS Safety Report 7864853-7 (Version None)
Quarter: 2011Q4

REPORT INFORMATION
  Report Type: 
  Country: None (occurrence: None)
  Receive Date: 20111028
  Receipt Date: 20100903
  Transmission Date: 20120403
  Serious: No
  Sender: FDA-Public Use
  Company Number: US-GLAXOSMITHKLINE-A0879576A

PATIENT
  Age: 53 Year
  Sex: Male

DRUGS (3)
  1. PREDNISONE [Concomitant]
     Route: 048
  2. DIABETES MEDICATION [Concomitant]
  3. ADVAIR DISKUS 100/50 [Suspect]
     Indication: ASTHMA
     Dosage: 1BLS TWICE PER DAY
     Route: 055
     Dates: start: 20100824

REACTIONS (5)
  - DYSPHONIA [None]
  - FEELING JITTERY [None]
  - NERVOUSNESS [None]
  - DRY MOUTH [None]
  - THROAT IRRITATION [None]
